FAERS Safety Report 20034486 (Version 3)
Quarter: 2022Q1

REPORT INFORMATION
  Report Type: Report from Study
  Country: PT (occurrence: PT)
  Receive Date: 20211104
  Receipt Date: 20220223
  Transmission Date: 20220423
  Serious: Yes (Other)
  Sender: FDA-Public Use
  Company Number: None

PATIENT
  Age: 58 Year
  Sex: Female
  Weight: 63 kg

DRUGS (28)
  1. TRASTUZUMAB [Suspect]
     Active Substance: TRASTUZUMAB
     Indication: Breast cancer
     Dosage: UNK, (MOST RECENT DOSE BEFORE AE ONSET: 29/NOV/2019,7/FEB/2020, 23/APR/2021, 14/MAY/2021)
     Route: 065
     Dates: start: 20190724, end: 20191129
  2. LETROZOLE [Suspect]
     Active Substance: LETROZOLE
     Indication: Breast cancer
     Dosage: UNK (START DATE: 07-FEB-2020)
     Route: 048
  3. TAXOL [Suspect]
     Active Substance: PACLITAXEL
     Indication: Breast cancer
     Dosage: UNK (MOST RECENT DOSE BEFORE AE ONSET: 07/FEB/2020)
     Route: 065
     Dates: start: 20190724
  4. PERTUZUMAB [Suspect]
     Active Substance: PERTUZUMAB
     Indication: Breast cancer
     Dosage: UNK, (MOST RECENT DOSE BEFORE AE ONSET: 29/NOV/2019,07/FEB/2020. 23/APR/2021, 14/MAY/2021)
     Route: 065
     Dates: start: 20190724, end: 20191129
  5. TRAMADOL [Concomitant]
     Active Substance: TRAMADOL
     Dosage: UNK, ONGOING = CHECKED (START DATE: 07-NOV-2021 )
     Dates: end: 20211107
  6. LOPERAMIDE [Concomitant]
     Active Substance: LOPERAMIDE
     Dosage: UNK
     Dates: end: 20211107
  7. DEXAMETHASONE [Concomitant]
     Active Substance: DEXAMETHASONE
     Dosage: UNK, ONGOING = CHECKED
     Dates: end: 20211107
  8. BISOPROLOL [Concomitant]
     Active Substance: BISOPROLOL
     Dosage: UNK, ONGOING = CHECKED
     Dates: end: 20211107
  9. CALCIUM\VITAMIN D [Concomitant]
     Active Substance: CALCIUM\VITAMIN D
     Dosage: UNK, ONGOING = CHECKED
     Dates: end: 20211107
  10. METOCLOPRAMIDE [Concomitant]
     Active Substance: METOCLOPRAMIDE
     Dosage: UNK
     Dates: end: 20211107
  11. ZOLPIDEM [Concomitant]
     Active Substance: ZOLPIDEM TARTRATE
     Dosage: UNK, ONGOING = CHECKED
     Dates: end: 20211107
  12. IBUPROFEN [Concomitant]
     Active Substance: IBUPROFEN
     Dosage: UNK
     Dates: start: 20191115, end: 20191118
  13. PERINDOPRIL [Concomitant]
     Active Substance: PERINDOPRIL
     Dosage: UNK, ONGOING = CHECKED (START DATE: 29-NOV-2019)
     Dates: end: 20211107
  14. METAMIZOL [Concomitant]
     Active Substance: METAMIZOLE SODIUM
     Dosage: UNK, ONGOING = CHECKED
     Dates: end: 20211107
  15. PREGABALIN [Concomitant]
     Active Substance: PREGABALIN
     Dosage: UNK, ONGOING = CHECKED
     Dates: end: 20211107
  16. ZOLEDRONIC ACID [Concomitant]
     Active Substance: ZOLEDRONIC ACID
     Dosage: UNK, ONGOING = CHECKED
     Dates: start: 20190723, end: 20211107
  17. LACTULOSE [Concomitant]
     Active Substance: LACTULOSE
     Dosage: UNK, ONGOING = CHECKED
     Dates: end: 20211107
  18. PANTOPRAZOLE SODIUM [Concomitant]
     Active Substance: PANTOPRAZOLE SODIUM
     Dosage: UNK, ONGOING = CHECKED
     Dates: end: 20211107
  19. ACETAMINOPHEN [Concomitant]
     Active Substance: ACETAMINOPHEN
     Dosage: UNK, ONGOING = CHECKED
     Dates: end: 20211107
  20. POLYETHYLENE GLYCOLS [Concomitant]
     Active Substance: POLYETHYLENE GLYCOLS
     Dosage: UNK (START DATE: 24-OCT-2020)
     Dates: end: 20211107
  21. HYDROCORTISONE [Concomitant]
     Active Substance: HYDROCORTISONE
     Dosage: UNK
  22. CLEMASTINE [Concomitant]
     Active Substance: CLEMASTINE
     Dosage: UNK
  23. TRIMETHOPRIM [Concomitant]
     Active Substance: TRIMETHOPRIM
     Dosage: UNK
  24. AMLODIPINE [Concomitant]
     Active Substance: AMLODIPINE BESYLATE
     Dosage: UNK
  25. FUROSEMIDE [Concomitant]
     Active Substance: FUROSEMIDE
     Dosage: UNK
  26. DULOXETINE [Concomitant]
     Active Substance: DULOXETINE
     Dosage: UNK (START DATE: 22-MAY-2020)
     Dates: end: 20211107
  27. ENOXAPARIN [Concomitant]
     Active Substance: ENOXAPARIN
     Dosage: UNK
  28. SULFAMETHOXAZOLE [Concomitant]
     Active Substance: SULFAMETHOXAZOLE
     Dosage: UNK

REACTIONS (1)
  - Ejection fraction decreased [Recovered/Resolved]

NARRATIVE: CASE EVENT DATE: 20191122
